FAERS Safety Report 9148786 (Version 1)
Quarter: 2013Q1

REPORT INFORMATION
  Report Type: Spontaneous
  Country: CH (occurrence: CH)
  Receive Date: 20130308
  Receipt Date: 20130308
  Transmission Date: 20140127
  Serious: Yes (Hospitalization, Other)
  Sender: FDA-Public Use
  Company Number: PHHY2013CH022515

PATIENT
  Age: 9 Year
  Sex: Male

DRUGS (15)
  1. EVEROLIMUS [Suspect]
     Indication: IMMUNOSUPPRESSION
     Dosage: 0.2 MG, BID
     Dates: start: 20130110, end: 20130206
  2. PROGRAF [Suspect]
     Indication: IMMUNOSUPPRESSION
     Dosage: 0.1 MG, BID
     Dates: start: 20120930
  3. VORICONAZOLE [Concomitant]
     Dosage: 1258 MG, BID
  4. URSOFALK [Concomitant]
     Dosage: 350 MG, BID
  5. DAPSONE [Concomitant]
     Dosage: 50 MG, QD
     Dates: start: 20130124
  6. VALACICLOVIR [Concomitant]
     Dosage: 450 MG, QD
  7. VI-DE 3 [Concomitant]
     Dosage: 700 IU, QD
  8. ESOMEP//ESOMEPRAZOLE [Concomitant]
     Dosage: 40 MG, QD
  9. ENALAPRIL [Concomitant]
     Dosage: 6.5 MG, BID
  10. ATENOLOL [Concomitant]
     Dosage: 12.5 MG, BID
  11. LENOGRASTIM [Concomitant]
     Dosage: 13.4 MIU/ML, QD
     Dates: start: 20130131
  12. MEROPENEM [Concomitant]
     Dosage: 700 MG, TID
     Dates: start: 20130202
  13. TEICOPLANIN [Concomitant]
     Dosage: 270 MG, QD
     Route: 042
     Dates: start: 20130202, end: 20130205
  14. FOLIC ACID [Concomitant]
     Dosage: UNK UKN, UNK
  15. CHEMOTHERAPEUTICS [Concomitant]
     Dosage: UNK UKN, UNK
     Dates: end: 20130102

REACTIONS (3)
  - Agranulocytosis [Unknown]
  - Pancytopenia [Unknown]
  - Immunosuppressant drug level increased [Unknown]
